FAERS Safety Report 7730033-9 (Version None)
Quarter: 2011Q3

REPORT INFORMATION
  Report Type: 
  Country: None (occurrence: None)
  Receive Date: 20110906
  Receipt Date: 20110825
  Transmission Date: 20111222
  Serious: Yes (Other)
  Sender: FDA-Public Use
  Company Number: PHEH2011US02607

PATIENT
  Sex: Female

DRUGS (4)
  1. VITAMIN D [Concomitant]
     Dosage: UNK UKN, UNK
  2. LASIX [Concomitant]
     Dosage: UNK UKN, UNK
  3. TRILEPTAL [Suspect]
     Indication: CONVULSION
     Dosage: UNK UKN, UNK
  4. DILANTIN [Concomitant]
     Dosage: UNK UKN, UNK

REACTIONS (5)
  - FUNGAL INFECTION [None]
  - CONVULSION [None]
  - GENITAL RASH [None]
  - NECK MASS [None]
  - HEAT RASH [None]
